FAERS Safety Report 6465016-2 (Version None)
Quarter: 2009Q4

REPORT INFORMATION
  Report Type: 
  Country: None (occurrence: None)
  Receive Date: 20091201
  Receipt Date: 20091117
  Transmission Date: 20100525
  Serious: Yes (Other)
  Sender: FDA-Public Use
  Company Number: CA-SOLVAY-00209006765

PATIENT
  Age: 35 Year
  Sex: Female
  Weight: 113 kg

DRUGS (1)
  1. PERINDOPRIL ERBUMINE 4MG-F51 TABLET [Suspect]
     Indication: HYPERTENSION
     Dosage: DAILY DOSE: 4 MILLIGRAM(S)
     Route: 048
     Dates: start: 20090707, end: 20090927

REACTIONS (2)
  - ABORTION SPONTANEOUS [None]
  - PREGNANCY [None]
